FAERS Safety Report 5150241-3 (Version None)
Quarter: 2006Q4

REPORT INFORMATION
  Report Type: 
  Country: None (occurrence: None)
  Receive Date: 20061109
  Receipt Date: 20061109
  Transmission Date: 20070319
  Serious: Yes (Other)
  Sender: FDA-Public Use
  Company Number: None

PATIENT
  Age: 42 Year
  Sex: Male
  Weight: 68.0396 kg

DRUGS (2)
  1. CHOLESTYRAMINE [Suspect]
     Indication: ILEECTOMY
     Dosage: 1/2 PACKAGE TID PO
     Route: 048
     Dates: start: 20060914, end: 20061108
  2. CHOLESTYRAMINE [Suspect]
     Indication: MALABSORPTION
     Dosage: 1/2 PACKAGE TID PO
     Route: 048
     Dates: start: 20060914, end: 20061108

REACTIONS (3)
  - ABDOMINAL DISTENSION [None]
  - FLATULENCE [None]
  - FOOD INTERACTION [None]
